FAERS Safety Report 22342138 (Version 1)
Quarter: 2023Q2

REPORT INFORMATION
  Report Type: Spontaneous
  Country: US (occurrence: US)
  Receive Date: 20230519
  Receipt Date: 20230519
  Transmission Date: 20230721
  Serious: Yes (Other)
  Sender: FDA-Public Use
  Company Number: US-002147023-NVSC2023US111787

PATIENT
  Age: 80 Year
  Sex: Male

DRUGS (6)
  1. CARBOPLATIN [Suspect]
     Active Substance: CARBOPLATIN
     Indication: Basal cell carcinoma metastatic
     Dosage: CYCLIC UNK, (6 AUC) (5 CYCLES)
     Route: 065
  2. CARBOPLATIN [Suspect]
     Active Substance: CARBOPLATIN
     Indication: Chemotherapy
  3. CARBOPLATIN [Suspect]
     Active Substance: CARBOPLATIN
     Indication: Prostate cancer
  4. PACLITAXEL [Suspect]
     Active Substance: PACLITAXEL
     Indication: Basal cell carcinoma metastatic
     Dosage: CYCLIC 200 MG/M2, (5 CYCLES)
     Route: 065
  5. PACLITAXEL [Suspect]
     Active Substance: PACLITAXEL
     Indication: Chemotherapy
  6. PACLITAXEL [Suspect]
     Active Substance: PACLITAXEL
     Indication: Prostate cancer

REACTIONS (2)
  - Neurotoxicity [Unknown]
  - Product use in unapproved indication [Unknown]
